FAERS Safety Report 20634789 (Version 2)
Quarter: 2022Q2

REPORT INFORMATION
  Report Type: Spontaneous
  Country: US (occurrence: US)
  Receive Date: 20220325
  Receipt Date: 20220420
  Transmission Date: 20220721
  Serious: No
  Sender: FDA-Public Use
  Company Number: US-BAUSCH-BL-2022-007028

PATIENT
  Age: 64 Year
  Sex: Male
  Weight: 104.42 kg

DRUGS (2)
  1. LOTEMAX SM [Suspect]
     Active Substance: LOTEPREDNOL ETABONATE
     Indication: Swelling
     Dosage: TWICE DAILY OR SOMETIMES THREE TIMES DAILY IN THE LEFT EYE.
     Route: 047
     Dates: start: 202108
  2. LOTEMAX SM [Suspect]
     Active Substance: LOTEPREDNOL ETABONATE
     Indication: Postoperative care

REACTIONS (5)
  - Mydriasis [Unknown]
  - Application site dryness [Unknown]
  - Application site irritation [Unknown]
  - Application site pruritus [Unknown]
  - Vision blurred [Unknown]
